FAERS Safety Report 8840927 (Version 1)
Quarter: 2012Q4

REPORT INFORMATION
  Report Type: 
  Country: US (occurrence: US)
  Receive Date: 20121015
  Receipt Date: 20121015
  Transmission Date: 20130627
  Serious: No
  Sender: FDA-Public Use
  Company Number: US-ASTRAZENECA-2012SE75057

PATIENT
  Age: 26 Year
  Sex: Male
  Weight: 72.6 kg

DRUGS (3)
  1. SEROQUEL [Suspect]
     Indication: BIPOLAR DISORDER
     Route: 048
     Dates: start: 2010, end: 201209
  2. SEROQUEL [Suspect]
     Indication: BIPOLAR DISORDER
     Route: 048
     Dates: start: 201209
  3. CITALOPRAM [Concomitant]
     Indication: DEPRESSION
     Route: 048

REACTIONS (2)
  - Depression [Unknown]
  - Intentional drug misuse [Unknown]
